FAERS Safety Report 11610721 (Version 1)
Quarter: 2015Q4

REPORT INFORMATION
  Report Type: Spontaneous
  Country: US (occurrence: US)
  Receive Date: 20151008
  Receipt Date: 20151008
  Transmission Date: 20160304
  Serious: No
  Sender: FDA-Public Use
  Company Number: US-PAR PHARMACEUTICAL, INC-2014SCPR009269

PATIENT

DRUGS (2)
  1. BALSALAZIDE DISODIUM. [Concomitant]
     Active Substance: BALSALAZIDE DISODIUM
     Indication: COLITIS
     Dosage: 1 DF, OD
     Route: 048
  2. FENTANYL TRANSDERMAL SYSTEM [Suspect]
     Active Substance: FENTANYL
     Indication: BACK PAIN
     Dosage: 1 PATCH, EVERY 72 HOURS
     Route: 062
     Dates: start: 20140630

REACTIONS (4)
  - Hyperhidrosis [Recovering/Resolving]
  - Insomnia [Recovered/Resolved]
  - Feeling hot [Recovering/Resolving]
  - Headache [Recovered/Resolved]

NARRATIVE: CASE EVENT DATE: 20140630
